FAERS Safety Report 8259862-2 (Version None)
Quarter: 2012Q2

REPORT INFORMATION
  Report Type: 
  Country: None (occurrence: None)
  Receive Date: 20120404
  Receipt Date: 20120326
  Transmission Date: 20120825
  Serious: Yes (Death, Life-Threatening, Hospitalization, Disabling, Other)
  Sender: FDA-Public Use
  Company Number: US-GLAXOSMITHKLINE-A0971158A

PATIENT
  Age: 78 Year
  Sex: Female

DRUGS (2)
  1. ONDANSETRON [Suspect]
     Indication: NAUSEA
     Dosage: 4MG SINGLE DOSE
     Route: 042
     Dates: start: 20110623, end: 20110623
  2. AMIODARONE HCL [Suspect]
     Indication: PRODUCT USED FOR UNKNOWN INDICATION

REACTIONS (3)
  - DRUG INTERACTION [None]
  - HYPOXIA [None]
  - CARDIAC ARREST [None]
